FAERS Safety Report 23779688 (Version 2)
Quarter: 2024Q2

REPORT INFORMATION
  Report Type: Spontaneous
  Country: CA (occurrence: CA)
  Receive Date: 20240424
  Receipt Date: 20240620
  Transmission Date: 20240716
  Serious: Yes (Disabling)
  Sender: FDA-Public Use
  Company Number: CA-PFIZER INC-202300118802

PATIENT
  Age: 50 Year
  Sex: Male

DRUGS (1)
  1. ABRILADA [Suspect]
     Active Substance: ADALIMUMAB-AFZB
     Indication: Crohn^s disease
     Dosage: 40 MG, WEEKLY
     Route: 058
     Dates: start: 20220803

REACTIONS (3)
  - Condition aggravated [Unknown]
  - Off label use [Unknown]
  - Fatigue [Not Recovered/Not Resolved]
